FAERS Safety Report 5614240-7 (Version None)
Quarter: 2008Q1

REPORT INFORMATION
  Report Type: 
  Country: None (occurrence: None)
  Receive Date: 20080205
  Receipt Date: 20080125
  Transmission Date: 20080703
  Serious: Yes (Other)
  Sender: FDA-Public Use
  Company Number: BE-PFIZER INC-2008009079

PATIENT
  Sex: Male

DRUGS (3)
  1. DETRUSITOL [Suspect]
     Dosage: DAILY DOSE:4MG
  2. CRESTOR [Concomitant]
  3. FURADANTIN [Concomitant]

REACTIONS (4)
  - CHEST PAIN [None]
  - HEADACHE [None]
  - RAYNAUD'S PHENOMENON [None]
  - VISION BLURRED [None]
